FAERS Safety Report 8003001-X (Version None)
Quarter: 2011Q4

REPORT INFORMATION
  Report Type: 
  Country: None (occurrence: None)
  Receive Date: 20111222
  Receipt Date: 20110804
  Transmission Date: 20120403
  Serious: No
  Sender: FDA-Public Use
  Company Number: US-GLAXOSMITHKLINE-A0939687A

PATIENT
  Age: 59 Year
  Sex: Male
  Weight: 130 kg

DRUGS (7)
  1. METFORMIN HCL [Concomitant]
  2. TOPROL-XL [Concomitant]
  3. AVODART [Suspect]
     Indication: PROSTATOMEGALY
     Dosage: .5MG PER DAY
     Route: 048
     Dates: start: 20110101, end: 20110301
  4. PLAVIX [Concomitant]
  5. TAMSULOSIN HCL [Concomitant]
  6. DIOVAN [Concomitant]
  7. SIMVASTATIN [Concomitant]

REACTIONS (2)
  - DYSURIA [None]
  - DRUG INEFFECTIVE [None]
